FAERS Safety Report 5864146-3 (Version None)
Quarter: 2008Q3

REPORT INFORMATION
  Report Type: 
  Country: None (occurrence: None)
  Receive Date: 20080829
  Receipt Date: 20080808
  Transmission Date: 20090109
  Serious: Yes (Other)
  Sender: FDA-Public Use
  Company Number: AU-ABBOTT-08P-008-0470091-00

PATIENT
  Age: 66 Year
  Sex: Male

DRUGS (1)
  1. LUCRIN DEPOT 22.5 MG [Suspect]
     Indication: PROSTATE CANCER
     Dates: start: 20080508

REACTIONS (1)
  - SCIATICA [None]
